FAERS Safety Report 9645266 (Version 1)
Quarter: 2013Q4

REPORT INFORMATION
  Report Type: Spontaneous
  Country: US (occurrence: None)
  Receive Date: 20131023
  Receipt Date: 20131023
  Transmission Date: 20140711
  Serious: Yes (Hospitalization)
  Sender: FDA-Public Use
  Company Number: None

PATIENT
  Age: 55 Year
  Sex: Female
  Weight: 74.84 kg

DRUGS (12)
  1. SULFAMETHOXAZOLE/TMP DS [Suspect]
     Indication: SKIN INFECTION
     Dosage: 1 BY MOUTH 2 TIMES A DAY
     Route: 048
     Dates: start: 20131008, end: 20131008
  2. PROPANOLOL [Concomitant]
  3. SINGULAIR [Concomitant]
  4. FLOVENT INHALER [Concomitant]
  5. ASPIRIN [Concomitant]
  6. PROGESTERONE SR [Concomitant]
  7. BI-ESTROGEN CREAM [Concomitant]
  8. DHEA [Concomitant]
  9. KRILL OIL [Concomitant]
  10. VITAMIN D3 [Concomitant]
  11. COENZYME Q10 [Concomitant]
  12. BIOTIN [Concomitant]

REACTIONS (12)
  - Pain in extremity [None]
  - Neck pain [None]
  - Arthralgia [None]
  - Nausea [None]
  - Pyrexia [None]
  - Chills [None]
  - Pruritus [None]
  - Dizziness [None]
  - Headache [None]
  - Fatigue [None]
  - Hypoaesthesia [None]
  - Muscle twitching [None]
